FAERS Safety Report 9326870 (Version 1)
Quarter: 2013Q2

REPORT INFORMATION
  Report Type: Spontaneous
  Country: US (occurrence: None)
  Receive Date: 20130530
  Receipt Date: 20130530
  Transmission Date: 20140414
  Serious: Yes (Hospitalization)
  Sender: FDA-Public Use
  Company Number: AUR-APL-2012-01604

PATIENT
  Age: 55 Year
  Sex: Male
  Weight: 111 kg

DRUGS (7)
  1. METFORMIN (METFORMIN) [Suspect]
     Indication: DIABETES MELLITUS
     Dosage: 1000 MG (500 MG, 2 IN 1 D), ORAL
     Route: 048
     Dates: start: 201111
  2. LIPITOR (ATORVASTATIN CALCIUM) [Suspect]
     Indication: BLOOD CHOLESTEROL INCREASED
     Route: 048
     Dates: start: 2007, end: 2011
  3. ATORVASTATIN CALCIUM (ATORVASTATIN CALCIUM) [Suspect]
     Indication: BLOOD CHOLESTEROL INCREASED
     Route: 048
     Dates: start: 201102
  4. CELEBREX (CELECOXIB) [Suspect]
     Indication: ARTHRITIS
     Dates: start: 2007
  5. VIAGRA (SILDENAFIL CITRATE) [Suspect]
     Indication: ERECTILE DYSFUNCTION
     Dosage: 100 MG, AS REQUIRED, UNKNOWN
     Dates: start: 2011
  6. GLUCOTROL XL [Suspect]
     Indication: DIABETES MELLITUS
     Dosage: 20 MG (10 MG, 2 IN 1 D), UNKNOWN
     Dates: start: 2005
  7. ACCUPRIL (QUINAPRIL HYDROCHLORIDE) [Suspect]
     Indication: HYPERTENSION

REACTIONS (3)
  - Nausea [None]
  - Myocardial infarction [None]
  - Respiratory arrest [None]
